FAERS Safety Report 26055787 (Version 2)
Quarter: 2025Q4

REPORT INFORMATION
  Report Type: Report from Study
  Country: EU (occurrence: EU)
  Receive Date: 20251117
  Receipt Date: 20251121
  Transmission Date: 20260117
  Serious: Yes (Hospitalization)
  Sender: ABBVIE
  Company Number: EU-ABBVIE-6510478

PATIENT
  Age: 47 Year
  Sex: Female

DRUGS (5)
  1. FOSCARBIDOPA\FOSLEVODOPA [Suspect]
     Active Substance: FOSCARBIDOPA\FOSLEVODOPA
     Indication: Parkinson^s disease
     Dosage: SD: 0.60 ML, CRN: 0.15 ML/H, CR: 0.15 ML/H, ED: 0.15 ML
     Route: 058
     Dates: start: 20251015, end: 20251015
  2. FOSCARBIDOPA\FOSLEVODOPA [Suspect]
     Active Substance: FOSCARBIDOPA\FOSLEVODOPA
     Dosage: SD: 0.60ML, CRN: 0.15ML/H, CR: 0.17ML/H, CRH: 0.19 ML/H?LAST ADMIN DATE: OCT 2025
     Route: 058
     Dates: start: 20251015
  3. FOSCARBIDOPA\FOSLEVODOPA [Suspect]
     Active Substance: FOSCARBIDOPA\FOSLEVODOPA
     Dosage: SD: 0.60 ML, CRN: 0.15 ML/H, CR: 0.19 ML/H, CRH: 0.21 ML/H, ED: ML
     Route: 058
     Dates: start: 202510, end: 20251016
  4. FOSCARBIDOPA\FOSLEVODOPA [Suspect]
     Active Substance: FOSCARBIDOPA\FOSLEVODOPA
     Dosage: SD: 0.60ML, CRN: 0.15ML/H, CR: 0.21ML/H, CRH: 0.23ML/H, ED: ML?LAST ADMIN DATE: OCT 2025
     Route: 058
     Dates: start: 20251016
  5. FOSCARBIDOPA\FOSLEVODOPA [Suspect]
     Active Substance: FOSCARBIDOPA\FOSLEVODOPA
     Dosage: CRN: 0.15ML/H, CR: 0.19ML/H, CRH: 0.21ML/H, ED: 0.15ML?THERAPY END DATE: 2025
     Route: 058
     Dates: start: 202510

REACTIONS (5)
  - Crying [Not Recovered/Not Resolved]
  - Hypokinesia [Recovered/Resolved]
  - Depression [Not Recovered/Not Resolved]
  - Hypokinesia [Not Recovered/Not Resolved]
  - Device issue [Unknown]

NARRATIVE: CASE EVENT DATE: 20250101
